FAERS Safety Report 8813011 (Version 1)
Quarter: 2012Q4

REPORT INFORMATION
  Report Type: Report from Study
  Country: DE (occurrence: DE)
  Receive Date: 20120927
  Receipt Date: 20120927
  Transmission Date: 20130627
  Serious: Yes (Hospitalization, Other)
  Sender: FDA-Public Use
  Company Number: DE-ROCHE-1133765

PATIENT
  Age: 76 Year
  Sex: Female
  Weight: 61 kg

DRUGS (1)
  1. MABTHERA [Suspect]
     Indication: RHEUMATOID ARTHRITIS
     Route: 042
     Dates: start: 20110824

REACTIONS (5)
  - Sick sinus syndrome [Not Recovered/Not Resolved]
  - Syncope [Not Recovered/Not Resolved]
  - Cardiac failure [Not Recovered/Not Resolved]
  - Leukopenia [Unknown]
  - Generalised oedema [Recovering/Resolving]
